FAERS Safety Report 6290843-4 (Version None)
Quarter: 2009Q3

REPORT INFORMATION
  Report Type: 
  Country: None (occurrence: None)
  Receive Date: 20090730
  Receipt Date: 20090722
  Transmission Date: 20100115
  Serious: Yes (Other)
  Sender: FDA-Public Use
  Company Number: AU-AMGEN-QUU356992

PATIENT
  Sex: Male

DRUGS (7)
  1. ARANESP [Suspect]
     Indication: DRUG USE FOR UNKNOWN INDICATION
     Dates: start: 20080207, end: 20081230
  2. DILTIAZEM HYDROCHLORIDE [Concomitant]
  3. FRUSEMIDE [Concomitant]
  4. METHYLDOPA [Concomitant]
  5. METOPROLOL TARTRATE [Concomitant]
  6. PRAZOSIN HYDROCHLORIDE [Concomitant]
  7. ZANIDIP [Concomitant]

REACTIONS (4)
  - DYSPNOEA [None]
  - LETHARGY [None]
  - PALPITATIONS [None]
  - WHEEZING [None]
